FAERS Safety Report 8761803 (Version 1)
Quarter: 2012Q4

REPORT INFORMATION
  Report Type: Spontaneous
  Country: US (occurrence: None)
  Receive Date: 20120830
  Receipt Date: 20120830
  Transmission Date: 20130627
  Serious: Yes (Disabling, Other)
  Sender: FDA-Public Use
  Company Number: None

PATIENT
  Age: 34 Year
  Sex: Male
  Weight: 73.2 kg

DRUGS (4)
  1. CIPROFLOXACIN [Suspect]
     Indication: BACTERIAL PROSTATITIS
     Dosage: 500 mg x1 TABLET BY MOUTH TWICE DAILY
     Route: 048
     Dates: start: 20100813, end: 20100911
  2. CIPROFLOXACIN [Suspect]
     Indication: URINARY TRACT DISORDER
     Dosage: 500 mg x1 TABLET BY MOUTH TWICE DAILY
     Route: 048
     Dates: start: 20100813, end: 20100911
  3. LEVAQUIN [Suspect]
     Dosage: 500 mg x1 TABLET BY MOUTH ONCE DAILY
     Route: 048
     Dates: start: 20110118, end: 20110124
  4. AVODART [Concomitant]

REACTIONS (60)
  - Abdominal pain [None]
  - Abdominal tenderness [None]
  - Diarrhoea [None]
  - Urticaria [None]
  - Pruritus [None]
  - Hypohidrosis [None]
  - Feeling jittery [None]
  - Cardiac flutter [None]
  - Extrasystoles [None]
  - Photophobia [None]
  - Headache [None]
  - Chest pain [None]
  - Throat irritation [None]
  - Chest discomfort [None]
  - Pain [None]
  - Pain in extremity [None]
  - Cough [None]
  - Arthralgia [None]
  - Arthralgia [None]
  - Suicidal ideation [None]
  - Depression [None]
  - Melaena [None]
  - Dizziness [None]
  - Dizziness [None]
  - Nausea [None]
  - Balance disorder [None]
  - Feeling abnormal [None]
  - Disturbance in attention [None]
  - Thinking abnormal [None]
  - Back pain [None]
  - Asthenia [None]
  - Spinal pain [None]
  - Musculoskeletal chest pain [None]
  - Joint dislocation [None]
  - Chest pain [None]
  - Fatigue [None]
  - Fatigue [None]
  - Muscular weakness [None]
  - Muscle atrophy [None]
  - Muscle tightness [None]
  - Peroneal nerve palsy [None]
  - Gait disturbance [None]
  - Arthralgia [None]
  - Arthralgia [None]
  - Pelvic pain [None]
  - Joint dislocation [None]
  - Pain in extremity [None]
  - Arthritis [None]
  - Ear pain [None]
  - Ear discomfort [None]
  - Tinnitus [None]
  - Hyperacusis [None]
  - Pain in jaw [None]
  - Eye pain [None]
  - Eye irritation [None]
  - Migraine [None]
  - Neuropathy peripheral [None]
  - Skin odour abnormal [None]
  - Decreased appetite [None]
  - Weight decreased [None]
